FAERS Safety Report 15190125 (Version 2)
Quarter: 2020Q1

REPORT INFORMATION
  Report Type: Spontaneous
  Country: AT (occurrence: AT)
  Receive Date: 20180724
  Receipt Date: 20200223
  Transmission Date: 20200409
  Serious: Yes (Other)
  Sender: FDA-Public Use
  Company Number: PHHY2017AT202165

PATIENT
  Age: 38 Year
  Sex: Male
  Weight: 102 kg

DRUGS (5)
  1. PROGRAF [Suspect]
     Active Substance: TACROLIMUS
     Indication: PROPHYLAXIS AGAINST TRANSPLANT REJECTION
     Dosage: 1.5 MG, QD
     Route: 048
     Dates: start: 20151223
  2. TACROLIMUS. [Suspect]
     Active Substance: TACROLIMUS
     Indication: RENAL TRANSPLANT
     Dosage: 1.5 MG, QD
     Route: 065
     Dates: start: 20151203, end: 20151221
  3. METHYLPREDNISOLONE. [Concomitant]
     Active Substance: METHYLPREDNISOLONE
     Dosage: 1 OT, QD (1 UNITS NOT REPORTED, ONCE DAILY)
     Route: 065
     Dates: start: 20170205, end: 20170301
  4. METHYLPREDNISOLONE. [Concomitant]
     Active Substance: METHYLPREDNISOLONE
     Dosage: 4 OT, QD (4 UNITS NOT REPORTED, ONCE DAILY)
     Route: 065
     Dates: start: 20170302, end: 20170801
  5. METHYLPREDNISOLONE. [Concomitant]
     Active Substance: METHYLPREDNISOLONE
     Indication: IMMUNOSUPPRESSANT DRUG THERAPY
     Dosage: 2 OT, QD (2 UNITS NOT REPORTED, ONCE DAILY)
     Route: 065
     Dates: start: 20170131, end: 20170204

REACTIONS (1)
  - Staphylococcal infection [Not Recovered/Not Resolved]

NARRATIVE: CASE EVENT DATE: 20170305
